FAERS Safety Report 9961562 (Version 1)
Quarter: 2014Q1

REPORT INFORMATION
  Report Type: Spontaneous
  Country: HU (occurrence: HU)
  Receive Date: 20140305
  Receipt Date: 20140305
  Transmission Date: 20141002
  Serious: Yes (Death, Hospitalization)
  Sender: FDA-Public Use
  Company Number: HU-ACTELION-A-CH2014-95573

PATIENT
  Age: 63 Year
  Sex: Female

DRUGS (3)
  1. TRACLEER [Suspect]
     Indication: PULMONARY ARTERIAL HYPERTENSION
     Dosage: 125 MG, BID
     Route: 048
     Dates: start: 2009, end: 20140225
  2. TRACLEER [Suspect]
     Dosage: 62.5 MG, BID
     Route: 048
     Dates: start: 2009
  3. SILDENAFIL [Concomitant]
     Dosage: UNK
     Dates: start: 2009

REACTIONS (4)
  - Cardiac failure [Fatal]
  - Pulmonary arterial hypertension [Unknown]
  - Disease progression [Unknown]
  - Upper limb fracture [Unknown]
